FAERS Safety Report 15793774 (Version 1)
Quarter: 2018Q4

REPORT INFORMATION
  Report Type: Spontaneous
  Country: US (occurrence: US)
  Receive Date: 20181213
  Receipt Date: 20181213
  Transmission Date: 20190205
  Serious: No
  Sender: FDA-Public Use
  Company Number: None

PATIENT
  Age: 62 Year
  Sex: Female

DRUGS (1)
  1. FORTEO [Suspect]
     Active Substance: TERIPARATIDE
     Indication: OSTEOPOROSIS
     Dates: start: 20180906

REACTIONS (5)
  - Therapy cessation [None]
  - Nephrolithiasis [None]
  - Condition aggravated [None]
  - Wrong schedule [None]
  - Protein urine present [None]

NARRATIVE: CASE EVENT DATE: 20180906
